FAERS Safety Report 17939588 (Version 2)
Quarter: 2020Q3

REPORT INFORMATION
  Report Type: Spontaneous
  Country: IT (occurrence: IT)
  Receive Date: 20200624
  Receipt Date: 20200703
  Transmission Date: 20201103
  Serious: Yes (Death)
  Sender: FDA-Public Use
  Company Number: NVSC2020IT176661

PATIENT
  Age: 86 Year
  Sex: Female

DRUGS (3)
  1. ILARIS [Suspect]
     Active Substance: CANAKINUMAB
     Indication: COVID-19
     Dosage: 300 MG, ONCE/SINGLE/TOTAL
     Route: 058
     Dates: start: 20200331, end: 20200331
  2. DARUNAVIR [Concomitant]
     Active Substance: DARUNAVIR
     Indication: COVID-19
     Dosage: UNK
     Route: 048
  3. DEXAMETHASONE. [Concomitant]
     Active Substance: DEXAMETHASONE
     Indication: COVID-19
     Dosage: UNK
     Route: 042

REACTIONS (7)
  - Off label use [Fatal]
  - Diarrhoea [Fatal]
  - Shock [Fatal]
  - Dehydration [Fatal]
  - Enterocolitis [Fatal]
  - Abdominal pain [Fatal]
  - Faecal vomiting [Fatal]

NARRATIVE: CASE EVENT DATE: 20200404
